FAERS Safety Report 23262914 (Version 3)
Quarter: 2024Q1

REPORT INFORMATION
  Report Type: Spontaneous
  Country: US (occurrence: US)
  Receive Date: 20231205
  Receipt Date: 20240307
  Transmission Date: 20240409
  Serious: Yes (Other)
  Sender: FDA-Public Use
  Company Number: US-PFIZER INC-202300400908

PATIENT
  Age: 59 Year
  Sex: Male

DRUGS (11)
  1. XELJANZ XR [Suspect]
     Active Substance: TOFACITINIB CITRATE
     Dosage: 11 MG, 1X/DAY
     Route: 048
  2. XELJANZ XR [Suspect]
     Active Substance: TOFACITINIB CITRATE
     Dosage: 11MG ORAL DAILY
     Route: 048
     Dates: start: 202403
  3. ALEVE [Concomitant]
     Active Substance: NAPROXEN SODIUM
     Dosage: UNK
  4. CELEBREX [Concomitant]
     Active Substance: CELECOXIB
     Dosage: UNK
  5. CRESTOR [Concomitant]
     Active Substance: ROSUVASTATIN CALCIUM
     Dosage: UNK
  6. ROSUVASTATIN CALCIUM [Concomitant]
     Active Substance: ROSUVASTATIN CALCIUM
     Dosage: UNK
  7. AMPHETAMINE SULFATE\DEXTROAMPHETAMINE [Concomitant]
     Active Substance: AMPHETAMINE SULFATE\DEXTROAMPHETAMINE
     Dosage: 20 MG
  8. LANSOPRAZOLE [Concomitant]
     Active Substance: LANSOPRAZOLE
     Dosage: UNK
  9. NITAZOXANIDE [Concomitant]
     Active Substance: NITAZOXANIDE
     Dosage: UNK
  10. AMOXICILLIN\CLAVULANATE POTASSIUM [Concomitant]
     Active Substance: AMOXICILLIN\CLAVULANATE POTASSIUM
  11. TRIAMCINOLONE ACETONIDE [Concomitant]
     Active Substance: TRIAMCINOLONE ACETONIDE
     Dosage: 0.1

REACTIONS (3)
  - Escherichia infection [Recovered/Resolved]
  - Immune system disorder [Not Recovered/Not Resolved]
  - Food poisoning [Unknown]

NARRATIVE: CASE EVENT DATE: 20231012
